FAERS Safety Report 13856657 (Version 1)
Quarter: 2017Q3

REPORT INFORMATION
  Report Type: Spontaneous
  Country: US (occurrence: US)
  Receive Date: 20170810
  Receipt Date: 20170810
  Transmission Date: 20171127
  Serious: No
  Sender: FDA-Public Use
  Company Number: US-ROCHE-1348867

PATIENT
  Sex: Female

DRUGS (6)
  1. BENADRYL [Concomitant]
     Active Substance: DIPHENHYDRAMINE HYDROCHLORIDE
     Indication: PRURITUS
  2. BENADRYL [Concomitant]
     Active Substance: DIPHENHYDRAMINE HYDROCHLORIDE
     Indication: THERMAL BURN
     Route: 065
  3. TAMIFLU [Suspect]
     Active Substance: OSELTAMIVIR PHOSPHATE
     Indication: INFLUENZA
     Route: 065
     Dates: start: 20140209, end: 20140209
  4. METHOTREXATE. [Concomitant]
     Active Substance: METHOTREXATE
     Indication: ASTHMA
     Route: 065
     Dates: start: 20140209, end: 20140209
  5. REMICADE [Concomitant]
     Active Substance: INFLIXIMAB
     Indication: CROHN^S DISEASE
     Route: 065
     Dates: start: 20140204, end: 20140204
  6. BENADRYL [Concomitant]
     Active Substance: DIPHENHYDRAMINE HYDROCHLORIDE
     Indication: URTICARIA

REACTIONS (9)
  - Pharyngeal oedema [Unknown]
  - Chest pain [Unknown]
  - Pain in jaw [Unknown]
  - Urticaria [Unknown]
  - Musculoskeletal pain [Unknown]
  - Pruritus [Unknown]
  - Skin burning sensation [Unknown]
  - Pain in extremity [Unknown]
  - Peripheral swelling [Unknown]
